FAERS Safety Report 5548301-8 (Version None)
Quarter: 2007Q4

REPORT INFORMATION
  Report Type: 
  Country: None (occurrence: None)
  Receive Date: 20071211
  Receipt Date: 20070402
  Transmission Date: 20080405
  Serious: No
  Sender: FDA-Public Use
  Company Number: US-AMGEN-KDL208762

PATIENT
  Sex: Female

DRUGS (4)
  1. ENBREL [Suspect]
     Indication: RHEUMATOID ARTHRITIS
     Route: 058
     Dates: start: 20050715
  2. COUMADIN [Concomitant]
     Dates: start: 19940101
  3. METHOTREXATE [Concomitant]
     Dates: start: 19980101
  4. FOLIC ACID [Concomitant]
     Dates: start: 19950101

REACTIONS (2)
  - CATARACT [None]
  - GLAUCOMA [None]
